FAERS Safety Report 7035557-8 (Version None)
Quarter: 2010Q4

REPORT INFORMATION
  Report Type: 
  Country: None (occurrence: None)
  Receive Date: 20101008
  Receipt Date: 20101005
  Transmission Date: 20110411
  Serious: Yes (Hospitalization)
  Sender: FDA-Public Use
  Company Number: DE-WYE-H16006110

PATIENT
  Sex: Male
  Weight: 72.5 kg

DRUGS (2)
  1. TEMSIROLIMUS [Suspect]
     Indication: GLIOBLASTOMA
     Route: 042
     Dates: start: 20100305, end: 20100616
  2. TEMSIROLIMUS [Suspect]
     Route: 042
     Dates: start: 20100630

REACTIONS (1)
  - VERTIGO POSITIONAL [None]
